FAERS Safety Report 11209775 (Version 1)
Quarter: 2015Q2

REPORT INFORMATION
  Report Type: Spontaneous
  Country: IT (occurrence: IT)
  Receive Date: 20150622
  Receipt Date: 20150622
  Transmission Date: 20150821
  Serious: Yes (Other)
  Sender: FDA-Public Use
  Company Number: IT-GILEAD-2015-0159608

PATIENT

DRUGS (1)
  1. EVIPLERA [Suspect]
     Active Substance: EMTRICITABINE\RILPIVIRINE\TENOFOVIR DISOPROXIL FUMARATE
     Indication: HIV INFECTION
     Dosage: UNK DF, UNK
     Route: 048

REACTIONS (6)
  - Nephropathy toxic [Unknown]
  - Virologic failure [Unknown]
  - Drug ineffective [Unknown]
  - Neurotoxicity [Unknown]
  - Hypersensitivity [Unknown]
  - Gastrointestinal toxicity [Unknown]
